FAERS Safety Report 14006351 (Version 1)
Quarter: 2017Q3

REPORT INFORMATION
  Report Type: Spontaneous
  Country: US (occurrence: US)
  Receive Date: 20170924
  Receipt Date: 20170924
  Transmission Date: 20171128
  Serious: No
  Sender: FDA-Public Use
  Company Number: US-BIOGEN-2017BI00460555

PATIENT
  Sex: Male

DRUGS (1)
  1. TYSABRI [Suspect]
     Active Substance: NATALIZUMAB
     Indication: MULTIPLE SCLEROSIS
     Route: 065
     Dates: start: 20170822

REACTIONS (7)
  - Dysarthria [Unknown]
  - Crohn^s disease [Unknown]
  - Depression [Unknown]
  - Cognitive disorder [Unknown]
  - Fatigue [Unknown]
  - Mental impairment [Unknown]
  - Multiple sclerosis [Unknown]
